FAERS Safety Report 9447482 (Version 4)
Quarter: 2014Q2

REPORT INFORMATION
  Report Type: Spontaneous
  Country: US (occurrence: US)
  Receive Date: 20130808
  Receipt Date: 20140609
  Transmission Date: 20141212
  Serious: Yes (Other)
  Sender: FDA-Public Use
  Company Number: US-PFIZER INC-2013229503

PATIENT
  Age: 48 Year
  Sex: Male
  Weight: 127 kg

DRUGS (1)
  1. LYRICA [Suspect]
     Indication: DIABETIC NEUROPATHY
     Dosage: 100 MG, 3X/DAY
     Route: 048
     Dates: start: 201304, end: 201307

REACTIONS (8)
  - Limb injury [Unknown]
  - Convulsion [Unknown]
  - Therapeutic response changed [Unknown]
  - Blood cholesterol increased [Unknown]
  - Blood glucose increased [Unknown]
  - Pain [Unknown]
  - Rash [Unknown]
  - Nerve injury [Unknown]
